FAERS Safety Report 8620340-X (Version None)
Quarter: 2012Q3

REPORT INFORMATION
  Report Type: 
  Country: None (occurrence: None)
  Receive Date: 20120824
  Receipt Date: 20120817
  Transmission Date: 20120928
  Serious: Yes (Hospitalization)
  Sender: FDA-Public Use
  Company Number: IT-ABBOTT-12P-083-0970639-00

PATIENT
  Sex: Male

DRUGS (7)
  1. ANAFRANIL [Suspect]
     Indication: DRUG ABUSE
     Dates: start: 20120713, end: 20120713
  2. LANTANON [Suspect]
     Indication: DRUG ABUSE
     Dates: start: 20120713, end: 20120713
  3. VALPROIC ACID [Suspect]
     Indication: DRUG ABUSE
     Dates: start: 20120713, end: 20120713
  4. OLANZAPINE [Suspect]
     Indication: DRUG ABUSE
     Dates: start: 20120713, end: 20120713
  5. TRAZODONE HCL [Suspect]
     Indication: DRUG ABUSE
     Dates: start: 20120713, end: 20120713
  6. HALDOL [Suspect]
     Indication: DRUG ABUSE
     Dates: start: 20120713, end: 20120713
  7. CLONAZEPAM [Suspect]
     Indication: DRUG ABUSE
     Dates: start: 20120713, end: 20120713

REACTIONS (5)
  - TACHYCARDIA [None]
  - SNORING [None]
  - SOPOR [None]
  - DYSARTHRIA [None]
  - DRUG ABUSE [None]
